FAERS Safety Report 18604186 (Version 1)
Quarter: 2020Q4

REPORT INFORMATION
  Report Type: Spontaneous
  Country: US (occurrence: US)
  Receive Date: 20201210
  Receipt Date: 20201210
  Transmission Date: 20210114
  Serious: Yes (Death)
  Sender: FDA-Public Use
  Company Number: None

PATIENT
  Age: 79 Year
  Sex: Male

DRUGS (1)
  1. H.P. ACTHAR [Suspect]
     Active Substance: CORTICOTROPIN
     Indication: NEPHRITIC SYNDROME
     Dosage: ?          OTHER STRENGTH:80 UNITS/ML;?
     Dates: start: 201708, end: 201910

REACTIONS (1)
  - Hospice care [None]

NARRATIVE: CASE EVENT DATE: 20191203
